FAERS Safety Report 14238210 (Version 1)
Quarter: 2017Q4

REPORT INFORMATION
  Report Type: Spontaneous
  Country: US (occurrence: US)
  Receive Date: 20171130
  Receipt Date: 20171130
  Transmission Date: 20180321
  Serious: No
  Sender: FDA-Public Use
  Company Number: US-SHIRE-US201725053

PATIENT

DRUGS (2)
  1. XIIDRA [Suspect]
     Active Substance: LIFITEGRAST
     Indication: DRY EYE
     Dosage: UNK UNK, 2X/DAY:BID MORNING AND NIGHT 12 HOURS APART;
     Dates: start: 201704, end: 2017
  2. XIIDRA [Suspect]
     Active Substance: LIFITEGRAST
     Dosage: UNK 2X/DAY:BID MORNING AND NIGHT 12 HOURS APART;
     Dates: start: 201706

REACTIONS (5)
  - Dizziness [Unknown]
  - Lacrimation increased [Unknown]
  - Instillation site burn [Unknown]
  - Instillation site pain [Unknown]
  - Dyspnoea [Unknown]
